FAERS Safety Report 25562416 (Version 1)
Quarter: 2025Q3

REPORT INFORMATION
  Report Type: Report from Study
  Country: CA (occurrence: CA)
  Receive Date: 20250716
  Receipt Date: 20250716
  Transmission Date: 20251020
  Serious: Yes (Other)
  Sender: SANDOZ
  Company Number: CA-002147023-NVSC2022CA207993

PATIENT
  Sex: Female

DRUGS (4)
  1. HYRIMOZ [Suspect]
     Active Substance: ADALIMUMAB-ADAZ
     Dosage: 10 MG, QW (PRE FILLED PEN)
     Route: 058
  2. HYRIMOZ [Suspect]
     Active Substance: ADALIMUMAB-ADAZ
     Dosage: 40 MG, QW,40 MG SOLUTION FOR INJECTION IN PRE-FILLED PEN
     Route: 058
  3. HYRIMOZ [Suspect]
     Active Substance: ADALIMUMAB-ADAZ
     Indication: Hidradenitis
     Route: 058
     Dates: start: 20220829
  4. HYRIMOZ [Suspect]
     Active Substance: ADALIMUMAB-ADAZ
     Route: 058
     Dates: start: 20220912

REACTIONS (10)
  - Tension headache [Not Recovered/Not Resolved]
  - Sleep apnoea syndrome [Unknown]
  - Dizziness [Unknown]
  - Erythema [Unknown]
  - Nodule [Unknown]
  - Skin lesion [Unknown]
  - Nausea [Unknown]
  - Hypertension [Unknown]
  - Drug ineffective [Unknown]
  - Off label use [Unknown]

NARRATIVE: CASE EVENT DATE: 20220101
